FAERS Safety Report 16756899 (Version 2)
Quarter: 2019Q3

REPORT INFORMATION
  Report Type: Report from Study
  Country: GB (occurrence: GB)
  Receive Date: 20190829
  Receipt Date: 20190920
  Transmission Date: 20191005
  Serious: Yes (Hospitalization)
  Sender: FDA-Public Use
  Company Number: GB-JNJFOC-20190837179

PATIENT
  Age: 82 Year
  Sex: Male

DRUGS (11)
  1. ALLOPURINOL. [Concomitant]
     Active Substance: ALLOPURINOL
  2. LISINOPRIL. [Concomitant]
     Active Substance: LISINOPRIL
  3. AMIODARONE [Concomitant]
     Active Substance: AMIODARONE
  4. XARELTO [Concomitant]
     Active Substance: RIVAROXABAN
  5. BISOPROLOL [Concomitant]
     Active Substance: BISOPROLOL
  6. RANITIDINE. [Concomitant]
     Active Substance: RANITIDINE
  7. STELARA [Suspect]
     Active Substance: USTEKINUMAB
     Indication: PSORIASIS
     Route: 058
     Dates: start: 20181023
  8. BUMETANIDE. [Concomitant]
     Active Substance: BUMETANIDE
  9. ASPRIN [Concomitant]
     Active Substance: ASPIRIN
  10. INSULIN [Concomitant]
     Active Substance: INSULIN NOS
  11. ROSUVASTATIN. [Concomitant]
     Active Substance: ROSUVASTATIN

REACTIONS (1)
  - Pulmonary sepsis [Not Recovered/Not Resolved]

NARRATIVE: CASE EVENT DATE: 201908
